FAERS Safety Report 20064958 (Version 2)
Quarter: 2021Q4

REPORT INFORMATION
  Report Type: Other
  Country: US (occurrence: None)
  Receive Date: 20211113
  Receipt Date: 20211203
  Transmission Date: 20220303
  Serious: Yes (Death)
  Sender: FDA-Public Use
  Company Number: US-ROCHE-2954987

PATIENT
  Age: 75 Year
  Sex: Male
  Weight: 118.95 kg

DRUGS (22)
  1. ESBRIET [Suspect]
     Active Substance: PIRFENIDONE
     Indication: Pulmonary fibrosis
     Dosage: TAKE 2 CAPSULE(S) BY MOUTH 3 TIMES A DAY AS DIRECTED
     Route: 048
     Dates: start: 20190925
  2. ESBRIET [Suspect]
     Active Substance: PIRFENIDONE
     Indication: Idiopathic pulmonary fibrosis
  3. COENZYME Q10 [Concomitant]
     Active Substance: DIETARY SUPPLEMENT\UBIDECARENONE
     Dates: start: 20140812
  4. DENTA 5000 PLUS [Concomitant]
     Active Substance: SODIUM FLUORIDE
     Dosage: 1.1% CREAM
     Dates: start: 20191006
  5. EPINEPHRINE [Concomitant]
     Active Substance: EPINEPHRINE
     Dosage: 0.3 MG/0.3 ML INJECTION AUTOINJECTOR
     Dates: start: 20170725
  6. GLIPIZIDE [Concomitant]
     Active Substance: GLIPIZIDE
     Dates: start: 20130114
  7. HUMALOG KWIKPEN [Concomitant]
     Active Substance: INSULIN LISPRO
     Dosage: 100 UNIT/ML, INJECT 40 UNITS DAILY
     Route: 058
     Dates: start: 20190712
  8. HUMALOG KWIKPEN [Concomitant]
     Active Substance: INSULIN LISPRO
     Dosage: 200 UNIT/ML, INJECT 40 UNITS DAILY
     Route: 058
     Dates: start: 20190708
  9. HUMALOG [Concomitant]
     Active Substance: INSULIN LISPRO
     Dosage: U-100 INSULIN 100 UNIT/ML
     Route: 058
  10. JANTOVEN [Concomitant]
     Active Substance: WARFARIN SODIUM
     Dates: start: 20191006
  11. LANTUS SOLOSTAR [Concomitant]
     Active Substance: INSULIN GLARGINE
     Dosage: U-100 INSULIN 100UNIT/ML SUBCUTANEOUS PEN
     Dates: start: 20190805
  12. LANTUS [Concomitant]
     Active Substance: INSULIN GLARGINE
     Dosage: U-100 100 UNIT/ML SUBCUTANEOUS SOLUTION
     Route: 058
     Dates: start: 20190708
  13. LISINOPRIL [Concomitant]
     Active Substance: LISINOPRIL
     Route: 048
     Dates: start: 20120717
  14. METOPROLOL TARTRATE [Concomitant]
     Active Substance: METOPROLOL TARTRATE
     Dates: start: 20190716
  15. MONTELUKAST [Concomitant]
     Active Substance: MONTELUKAST SODIUM
     Route: 048
     Dates: start: 20190722
  16. NASACORT AQ [Concomitant]
     Active Substance: TRIAMCINOLONE ACETONIDE
     Dates: start: 20170821
  17. PROAIR HFA [Concomitant]
     Active Substance: ALBUTEROL SULFATE
     Dates: start: 20171027
  18. PROAIR RESPICLICK [Concomitant]
     Active Substance: ALBUTEROL SULFATE
     Dates: start: 20190708
  19. SIMVASTATIN [Concomitant]
     Active Substance: SIMVASTATIN
     Route: 048
     Dates: start: 20190722
  20. SINGULAIR [Concomitant]
     Active Substance: MONTELUKAST SODIUM
     Route: 048
     Dates: start: 20190708
  21. TAMSULOSIN [Concomitant]
     Active Substance: TAMSULOSIN
     Route: 048
     Dates: start: 20190820
  22. TESTOSTERONE CYPIONATE [Concomitant]
     Active Substance: TESTOSTERONE CYPIONATE
     Dosage: 200 MG/ML
     Route: 030
     Dates: start: 20190701

REACTIONS (1)
  - COVID-19 pneumonia [Fatal]

NARRATIVE: CASE EVENT DATE: 20211101
